FAERS Safety Report 15647203 (Version 1)
Quarter: 2018Q4

REPORT INFORMATION
  Report Type: Report from Study
  Country: US (occurrence: US)
  Receive Date: 20181122
  Receipt Date: 20181122
  Transmission Date: 20190205
  Serious: Yes (Other)
  Sender: FDA-Public Use
  Company Number: US-AMGEN INC.-USASL2018159714

PATIENT
  Age: 46 Year
  Sex: Female
  Weight: 44.44 kg

DRUGS (1)
  1. AIMOVIG [Suspect]
     Active Substance: ERENUMAB-AOOE
     Indication: MIGRAINE WITHOUT AURA
     Dosage: 70 MG, QMO
     Route: 065
     Dates: start: 20180815, end: 20181015

REACTIONS (7)
  - Pain in extremity [Unknown]
  - Eye swelling [Unknown]
  - Dyskinesia [Unknown]
  - Muscle twitching [Unknown]
  - Pruritus [Unknown]
  - Rash [Recovered/Resolved]
  - Urticaria [Unknown]

NARRATIVE: CASE EVENT DATE: 2018
